FAERS Safety Report 4562812-3 (Version None)
Quarter: 2005Q1

REPORT INFORMATION
  Report Type: 
  Country: None (occurrence: None)
  Receive Date: 20050127
  Receipt Date: 20041217
  Transmission Date: 20050727
  Serious: Yes (Hospitalization)
  Sender: FDA-Public Use
  Company Number: JP-GLAXOSMITHKLINE-B0362234A

PATIENT
  Age: 77 Year
  Sex: Male
  Weight: 48 kg

DRUGS (7)
  1. MODACIN [Suspect]
     Indication: PNEUMONIA
     Dosage: 1G TWICE PER DAY
     Route: 042
     Dates: start: 20041029, end: 20041029
  2. HOKUNALIN [Concomitant]
     Indication: ASTHMA
     Dosage: 2MG PER DAY
     Route: 062
  3. ZANTAC [Concomitant]
     Indication: GASTRIC ULCER
     Dosage: 150MG PER DAY
  4. THEO-DUR [Concomitant]
     Indication: ASTHMA
     Dosage: 400MG PER DAY
     Route: 048
  5. ASPARA K [Concomitant]
     Dosage: 600MG PER DAY
     Route: 048
  6. ANTOBRON [Concomitant]
     Indication: CHRONIC OBSTRUCTIVE PULMONARY DISEASE
     Route: 048
  7. BISOLVON [Concomitant]
     Indication: CHRONIC OBSTRUCTIVE PULMONARY DISEASE
     Route: 048

REACTIONS (5)
  - ANAPHYLACTIC SHOCK [None]
  - COLD SWEAT [None]
  - CYANOSIS [None]
  - NAUSEA [None]
  - RASH [None]
